FAERS Safety Report 17361224 (Version 1)
Quarter: 2020Q1

REPORT INFORMATION
  Report Type: Report from Study
  Country: None (occurrence: US)
  Receive Date: 20200203
  Receipt Date: 20200203
  Transmission Date: 20200409
  Serious: Yes (Other)
  Sender: FDA-Public Use
  Company Number: US-ABBVIE-19K-163-3204688-00

PATIENT
  Age: 65 Year
  Sex: Female

DRUGS (4)
  1. HUMIRA [Suspect]
     Active Substance: ADALIMUMAB
     Indication: RHEUMATOID ARTHRITIS
     Route: 058
     Dates: end: 2018
  2. RITUXAN [Concomitant]
     Active Substance: RITUXIMAB
     Indication: PRODUCT USED FOR UNKNOWN INDICATION
  3. PREDNISONE. [Suspect]
     Active Substance: PREDNISONE
     Indication: PRODUCT USED FOR UNKNOWN INDICATION
     Route: 065
  4. HUMIRA [Suspect]
     Active Substance: ADALIMUMAB
     Route: 058
     Dates: start: 201910

REACTIONS (18)
  - Skin lesion [Unknown]
  - Loss of personal independence in daily activities [Unknown]
  - Grip strength decreased [Recovered/Resolved]
  - Fatigue [Unknown]
  - Musculoskeletal stiffness [Recovering/Resolving]
  - Back pain [Unknown]
  - Device issue [Unknown]
  - Osteoarthritis [Unknown]
  - Weight increased [Unknown]
  - Pain [Unknown]
  - Breast cancer stage I [Recovered/Resolved]
  - Mobility decreased [Unknown]
  - Joint swelling [Unknown]
  - Back pain [Recovered/Resolved]
  - Impaired self-care [Recovered/Resolved]
  - Hyperhidrosis [Unknown]
  - Influenza like illness [Unknown]
  - Asthenia [Unknown]

NARRATIVE: CASE EVENT DATE: 201903
